FAERS Safety Report 8030134-4 (Version None)
Quarter: 2012Q1

REPORT INFORMATION
  Report Type: 
  Country: None (occurrence: None)
  Receive Date: 20120109
  Receipt Date: 20111228
  Transmission Date: 20120608
  Serious: Yes (Hospitalization)
  Sender: FDA-Public Use
  Company Number: FR-UCBSA-037431

PATIENT
  Age: 53 Year
  Sex: Male

DRUGS (12)
  1. RAMIPRIL [Suspect]
     Route: 048
     Dates: start: 20110604, end: 20110614
  2. PREDNISOLONE [Suspect]
     Route: 048
     Dates: start: 20110630
  3. SOLU-MEDROL [Concomitant]
     Route: 042
     Dates: start: 20110601, end: 20110604
  4. SOLU-MEDROL [Concomitant]
     Route: 042
     Dates: start: 20110626, end: 20110629
  5. KEPPRA [Suspect]
     Route: 048
  6. KAYEXALATE [Suspect]
     Route: 048
     Dates: start: 20110603, end: 20110626
  7. CITALOPRAM [Suspect]
     Route: 048
  8. PREDNISOLONE [Suspect]
     Route: 048
     Dates: start: 20110605, end: 20110626
  9. ATORVASTATIN CALCIUM [Suspect]
     Route: 048
     Dates: start: 20110530, end: 20110624
  10. REPAGLINIDE [Suspect]
     Indication: DIABETES MELLITUS
     Route: 048
     Dates: start: 20110603, end: 20110626
  11. EUPRESSYL [Suspect]
     Route: 048
     Dates: start: 20110529
  12. AMLODIPINE BESYLATE [Suspect]
     Route: 048

REACTIONS (3)
  - DIZZINESS [None]
  - NEPHROPATHY [None]
  - LEUKOCYTOCLASTIC VASCULITIS [None]
